FAERS Safety Report 9331978 (Version 2)
Quarter: 2014Q1

REPORT INFORMATION
  Report Type: Report from Study
  Country: IL (occurrence: IL)
  Receive Date: 20130605
  Receipt Date: 20140120
  Transmission Date: 20141002
  Serious: Yes (Hospitalization, Other)
  Sender: FDA-Public Use
  Company Number: IL-ELI_LILLY_AND_COMPANY-IL201305009036

PATIENT
  Age: 59 Year
  Sex: Female

DRUGS (7)
  1. TERIPARATIDE [Suspect]
     Indication: OSTEOPOROSIS
     Dosage: 20 UG, QD
     Route: 058
     Dates: start: 20121118, end: 20130319
  2. TERIPARATIDE [Suspect]
     Dosage: 20 UG, QD
     Route: 058
     Dates: start: 201401
  3. OMEPRADEX [Concomitant]
     Dosage: 20MG, UNK
  4. TRIVIMINE [Concomitant]
     Dosage: 20MG, UNK
  5. HEXAKAPRON [Concomitant]
     Dosage: 500MG, UNK
  6. PREDNISONE [Concomitant]
     Dosage: 20MG, UNK
  7. IMURAN [Concomitant]
     Dosage: UNK, UNK

REACTIONS (6)
  - Spinal fracture [Unknown]
  - Coagulopathy [Unknown]
  - Fall [Unknown]
  - Pain [Not Recovered/Not Resolved]
  - Paraesthesia [Not Recovered/Not Resolved]
  - Back pain [Not Recovered/Not Resolved]
